FAERS Safety Report 16433567 (Version 1)
Quarter: 2019Q2

REPORT INFORMATION
  Report Type: Spontaneous
  Country: US (occurrence: US)
  Receive Date: 20190614
  Receipt Date: 20190614
  Transmission Date: 20190711
  Serious: No
  Sender: FDA-Public Use
  Company Number: US-JNJFOC-20161121926

PATIENT
  Sex: Male

DRUGS (5)
  1. RISPERDAL M-TAB [Suspect]
     Active Substance: RISPERIDONE
     Indication: SCHIZOPHRENIA
     Route: 048
     Dates: start: 2009, end: 2009
  2. RISPERDAL M-TAB [Suspect]
     Active Substance: RISPERIDONE
     Indication: SCHIZOPHRENIA
     Dosage: 3MG, 4MG
     Route: 048
     Dates: start: 2007
  3. RISPERDAL [Suspect]
     Active Substance: RISPERIDONE
     Indication: SCHIZOPHRENIA
     Route: 048
     Dates: end: 2009
  4. RISPERDAL [Suspect]
     Active Substance: RISPERIDONE
     Indication: SCHIZOPHRENIA
     Route: 048
     Dates: start: 2007
  5. RISPERDAL M-TAB [Suspect]
     Active Substance: RISPERIDONE
     Indication: SCHIZOPHRENIA
     Dosage: 4MG PLUS 12 MG, 3 MG PLUS 2 MG
     Route: 048
     Dates: start: 2008

REACTIONS (5)
  - Sedation [Unknown]
  - Gynaecomastia [Unknown]
  - Blood prolactin increased [Unknown]
  - Dyslipidaemia [Unknown]
  - Abnormal weight gain [Unknown]
